FAERS Safety Report 25502547 (Version 3)
Quarter: 2025Q3

REPORT INFORMATION
  Report Type: Report from Study
  Country: US (occurrence: US)
  Receive Date: 20250702
  Receipt Date: 20250822
  Transmission Date: 20251021
  Serious: Yes (Other)
  Sender: ROCHE
  Company Number: US-ROCHE-10000320050

PATIENT
  Age: 45 Year
  Sex: Male
  Weight: 135.08 kg

DRUGS (4)
  1. RITUXAN [Suspect]
     Active Substance: RITUXIMAB
     Indication: Follicular lymphoma
     Dosage: DATE OF SERVICE: 20-JUN-2025
     Route: 042
  2. ACETAMINOPHEN Oral [Concomitant]
     Route: 048
  3. DIPHENHYDRAMINE [Concomitant]
     Active Substance: DIPHENHYDRAMINE
     Route: 042
  4. SODIUM CHLORIDE [Concomitant]
     Active Substance: SODIUM CHLORIDE

REACTIONS (5)
  - Nausea [Unknown]
  - Helicobacter infection [Unknown]
  - Vomiting [Unknown]
  - Neoplasm malignant [Unknown]
  - Limb injury [Unknown]
